FAERS Safety Report 18910585 (Version 1)
Quarter: 2021Q1

REPORT INFORMATION
  Report Type: Spontaneous
  Country: US (occurrence: US)
  Receive Date: 20210218
  Receipt Date: 20210218
  Transmission Date: 20210420
  Serious: Yes (Hospitalization)
  Sender: FDA-Public Use
  Company Number: US-MYLANLABS-2021M1009664

PATIENT
  Age: 53 Year
  Sex: Male

DRUGS (12)
  1. CYTARABINE. [Suspect]
     Active Substance: CYTARABINE
     Dosage: 4140 MILLIGRAM ADMITTED IN SEPTEMBER 2010 ??
     Route: 065
     Dates: start: 201009
  2. IDARUBICIN [Concomitant]
     Active Substance: IDARUBICIN
     Indication: ACUTE PROMYELOCYTIC LEUKAEMIA
     Dosage: THE PATIENT WAS SUBSEQUENTLY ADMITTED IN??.
     Route: 065
     Dates: start: 201008
  3. TRETINOIN. [Suspect]
     Active Substance: TRETINOIN
     Indication: ACUTE PROMYELOCYTIC LEUKAEMIA
     Dosage: INDUCTION THERAPY IN JUNE 2010; THIS DOSE WAS ??.
     Route: 065
     Dates: start: 201006
  4. HYDROCORTISONE. [Concomitant]
     Active Substance: HYDROCORTISONE
     Indication: ACUTE PROMYELOCYTIC LEUKAEMIA
     Dosage: RECEIVED HIS FIRST DOSE OF PROPHYLACTIC INTRATHECAL ??
     Route: 037
     Dates: start: 201008
  5. CYTARABINE. [Suspect]
     Active Substance: CYTARABINE
     Dosage: 1ST CYCLE OF CONSOLIDATION THERAPY
     Route: 065
     Dates: start: 201008
  6. DAUNOMYCIN                         /00128201/ [Suspect]
     Active Substance: DAUNORUBICIN
     Indication: ACUTE PROMYELOCYTIC LEUKAEMIA
     Dosage: INDUCTION THERAPY WITH ALL? TRANS RETINOIC ACID ???
     Route: 065
     Dates: start: 201006
  7. DAUNOMYCIN                         /00128201/ [Concomitant]
     Active Substance: DAUNORUBICIN
     Indication: ACUTE PROMYELOCYTIC LEUKAEMIA
     Dosage: 93 MILLIGRAM INADVERTENTLY RECEIVED INTRATHECAL ???
     Route: 037
     Dates: start: 201009
  8. METHOTREXATE. [Concomitant]
     Active Substance: METHOTREXATE
     Indication: ACUTE PROMYELOCYTIC LEUKAEMIA
     Dosage: RECEIVED HIS FIRST DOSE OF PROPHYLACTIC INTRATHECAL ??..
     Route: 037
     Dates: start: 201008
  9. CYTARABINE. [Suspect]
     Active Substance: CYTARABINE
     Indication: ACUTE PROMYELOCYTIC LEUKAEMIA
     Dosage: INDUCTION THERAPY IN JUNE 2010; THIS DOSE WAS ?..
     Route: 065
     Dates: start: 201006
  10. CYTARABINE. [Suspect]
     Active Substance: CYTARABINE
     Indication: ACUTE PROMYELOCYTIC LEUKAEMIA
     Dosage: FIRST DOSE OF PROPHYLACTIC INTRATHECAL CHEMOTHERAPY ??
     Route: 037
     Dates: start: 201008
  11. TRETINOIN. [Suspect]
     Active Substance: TRETINOIN
     Dosage: ADMITTED IN AUGUST 2010 FOR THE FIRST CYCLE OF ??
     Route: 065
     Dates: start: 201008
  12. DAUNOMYCIN                         /00128201/ [Suspect]
     Active Substance: DAUNORUBICIN
     Dosage: 128 MILLIGRAM ADMITTED IN SEPTEMBER 2010 FOR?..
     Route: 065
     Dates: start: 201009

REACTIONS (3)
  - Off label use [Unknown]
  - Febrile neutropenia [Unknown]
  - Colitis [Unknown]

NARRATIVE: CASE EVENT DATE: 201006
